FAERS Safety Report 4400173-0 (Version None)
Quarter: 2004Q3

REPORT INFORMATION
  Report Type: 
  Country: None (occurrence: None)
  Receive Date: 20040716
  Receipt Date: 20040628
  Transmission Date: 20050211
  Serious: Yes (Hospitalization)
  Sender: FDA-Public Use
  Company Number: USA040567165

PATIENT
  Age: 85 Year
  Sex: Female
  Weight: 66 kg

DRUGS (9)
  1. FORTEO [Suspect]
     Indication: OSTEOPOROSIS
     Dosage: 20 UG DAY
     Dates: start: 20030401
  2. INSULIN [Concomitant]
  3. COUMADIN [Concomitant]
  4. FUROSEMIDE [Concomitant]
  5. NORVASC [Concomitant]
  6. TRICOR [Concomitant]
  7. LANOXIN [Concomitant]
  8. ACCUPRIL [Concomitant]
  9. METOPROLOL [Concomitant]

REACTIONS (6)
  - FALL [None]
  - HUMERUS FRACTURE [None]
  - HYPOXIA [None]
  - LIMB INJURY [None]
  - PHARMACEUTICAL PRODUCT COMPLAINT [None]
  - PNEUMONIA ASPIRATION [None]
